FAERS Safety Report 8053741-1 (Version None)
Quarter: 2012Q1

REPORT INFORMATION
  Report Type: 
  Country: None (occurrence: None)
  Receive Date: 20120110
  Receipt Date: 20111226
  Transmission Date: 20120608
  Serious: Yes (Other)
  Sender: FDA-Public Use
  Company Number: JP-1189554

PATIENT
  Age: 80 Year
  Sex: Male

DRUGS (6)
  1. TRAVATAN [Suspect]
     Indication: OPEN ANGLE GLAUCOMA
     Dosage: (1 GTT QD OU OPHTHALMIC)
     Route: 047
     Dates: start: 20081122
  2. TICLOPIDINE HCL [Concomitant]
  3. URINMET [Concomitant]
  4. DIAMOX SRC [Concomitant]
  5. CINAL [Concomitant]
  6. WARFARIN SODIUM [Concomitant]

REACTIONS (2)
  - CONJUNCTIVITIS ALLERGIC [None]
  - VISUAL ACUITY REDUCED [None]
